FAERS Safety Report 14711587 (Version 2)
Quarter: 2018Q2

REPORT INFORMATION
  Report Type: Spontaneous
  Country: FR (occurrence: FR)
  Receive Date: 20180403
  Receipt Date: 20180422
  Transmission Date: 20180711
  Serious: Yes (Other)
  Sender: FDA-Public Use
  Company Number: FR-APOPHARMA USA, INC.-2018AP008986

PATIENT
  Age: 68 Year
  Sex: Male

DRUGS (4)
  1. CARMUSTINE [Concomitant]
     Active Substance: CARMUSTINE
     Indication: STEM CELL TRANSPLANT
     Dosage: UNK, UNKNOWN
     Route: 065
  2. ETOPOSIDE. [Concomitant]
     Active Substance: ETOPOSIDE
     Indication: STEM CELL TRANSPLANT
     Dosage: UNK, UNKNOWN
     Route: 065
  3. ALKERAN [Suspect]
     Active Substance: MELPHALAN
     Indication: STEM CELL TRANSPLANT
     Dosage: UNK, UNKNOWN
     Route: 065
  4. CYTARABINE. [Concomitant]
     Active Substance: CYTARABINE
     Indication: STEM CELL TRANSPLANT
     Dosage: UNK, UNKNOWN
     Route: 065

REACTIONS (6)
  - Weight increased [Unknown]
  - Hepatitis acute [Unknown]
  - Venoocclusive liver disease [Unknown]
  - Ascites [Unknown]
  - Febrile neutropenia [Unknown]
  - Abdominal pain [Unknown]
